FAERS Safety Report 7651158-2 (Version None)
Quarter: 2011Q3

REPORT INFORMATION
  Report Type: 
  Country: None (occurrence: None)
  Receive Date: 20110802
  Receipt Date: 20081108
  Transmission Date: 20111222
  Serious: Yes (Other)
  Sender: FDA-Public Use
  Company Number: US-BAYER-200829288NA

PATIENT
  Sex: Male
  Weight: 84 kg

DRUGS (25)
  1. OMNISCAN [Suspect]
     Indication: PRODUCT USED FOR UNKNOWN INDICATION
  2. MULTIHANCE [Suspect]
     Indication: PRODUCT USED FOR UNKNOWN INDICATION
  3. PROHANCE [Suspect]
     Indication: PRODUCT USED FOR UNKNOWN INDICATION
  4. PROGRAF [Concomitant]
  5. CELLCEPT [Concomitant]
  6. PREDNISONE [Concomitant]
  7. DYNACIRC [Concomitant]
  8. MAGNEVIST [Suspect]
     Indication: ANGIOGRAM
  9. METOPROLOL TARTRATE [Concomitant]
  10. BUMETANIDE [Concomitant]
  11. GLYBURIDE [Concomitant]
  12. MAGNEVIST [Suspect]
     Indication: NUCLEAR MAGNETIC RESONANCE IMAGING
     Dosage: 40 ML
     Dates: start: 20070201, end: 20070201
  13. NORVASC [Concomitant]
  14. MAGNEVIST [Suspect]
  15. PLAVIX [Concomitant]
  16. PRAVACHOL [Concomitant]
  17. OPTIMARK [Suspect]
     Indication: PRODUCT USED FOR UNKNOWN INDICATION
  18. STEROID ANTIBACTERIALS [Concomitant]
  19. CARISOPRODOL [Concomitant]
  20. CIPROFLAXACIN [Concomitant]
  21. HYDROCODONE [Concomitant]
  22. TOPROL-XL [Concomitant]
  23. ALPRAZOLAM [Concomitant]
  24. GLIPIZIDE [Concomitant]
  25. SULFAMETHOXAZOLE [Concomitant]

REACTIONS (10)
  - GENERAL PHYSICAL HEALTH DETERIORATION [None]
  - EMOTIONAL DISTRESS [None]
  - NEPHROGENIC SYSTEMIC FIBROSIS [None]
  - ANXIETY [None]
  - MOBILITY DECREASED [None]
  - SKIN TIGHTNESS [None]
  - DISCOMFORT [None]
  - INJURY [None]
  - PAIN [None]
  - POLLAKIURIA [None]
